FAERS Safety Report 4848727-1 (Version None)
Quarter: 2005Q4

REPORT INFORMATION
  Report Type: 
  Country: None (occurrence: None)
  Receive Date: 20051206
  Receipt Date: 20051123
  Transmission Date: 20060501
  Serious: Yes (Other)
  Sender: FDA-Public Use
  Company Number: GB200511002636

PATIENT
  Age: 30 Year
  Sex: Female
  Weight: 57.2 kg

DRUGS (2)
  1. FLUOXETINE [Suspect]
     Indication: DEPRESSION
     Dosage: 20 MG, ORAL
     Route: 048
     Dates: start: 20051107, end: 20051111
  2. ETHINYLESTRADIOL W/NORGESTIMATE (ETHINYLESTRADIOL, NORGESTIMATE) [Concomitant]

REACTIONS (8)
  - ANXIETY [None]
  - HYPERHIDROSIS [None]
  - INSOMNIA [None]
  - NAUSEA [None]
  - RESTLESSNESS [None]
  - TEARFULNESS [None]
  - TREMOR [None]
  - VOMITING [None]
